FAERS Safety Report 5411575-8 (Version None)
Quarter: 2007Q3

REPORT INFORMATION
  Report Type: 
  Country: None (occurrence: None)
  Receive Date: 20070810
  Receipt Date: 20070731
  Transmission Date: 20080115
  Serious: Yes (Other)
  Sender: FDA-Public Use
  Company Number: US-PFIZER INC-2007044105

PATIENT
  Sex: Male
  Weight: 124.7 kg

DRUGS (9)
  1. TIKOSYN [Suspect]
     Indication: ARRHYTHMIA
  2. IMDUR [Concomitant]
     Dosage: DAILY DOSE:120MG
  3. TOPROL-XL [Concomitant]
     Dosage: DAILY DOSE:50MG
  4. COUMADIN [Concomitant]
     Dosage: DAILY DOSE:5MG
  5. ZETIA [Concomitant]
     Dosage: DAILY DOSE:10MG
  6. ULTRAM [Concomitant]
     Indication: BACK PAIN
     Dosage: DAILY DOSE:50MG-FREQ:AS NEEDED
  7. LIPITOR [Concomitant]
     Dosage: DAILY DOSE:10MG
  8. DIOVAN [Concomitant]
     Dosage: DAILY DOSE:80MG
  9. ASPIRIN [Concomitant]
     Dosage: DAILY DOSE:81MG

REACTIONS (1)
  - VISION BLURRED [None]
